FAERS Safety Report 8539385-3 (Version None)
Quarter: 2012Q3

REPORT INFORMATION
  Report Type: 
  Country: None (occurrence: None)
  Receive Date: 20120726
  Receipt Date: 20120604
  Transmission Date: 20120928
  Serious: Yes (Death)
  Sender: FDA-Public Use
  Company Number: US-BAYER-2012-055988

PATIENT
  Age: 55 Year
  Sex: Male
  Weight: 85.986 kg

DRUGS (16)
  1. ANAGRELIDE HCL [Suspect]
     Dosage: 5 MG, UNK
     Dates: start: 20060208, end: 20060410
  2. ANAGRELIDE HCL [Suspect]
     Dosage: 5 MG, UNK
     Dates: start: 20051010, end: 20051212
  3. CANDESARTAN [Suspect]
     Indication: HYPERTENSION
     Dosage: 8 MG, QD
     Dates: start: 20080101
  4. ANAGRELIDE HCL [Suspect]
     Dosage: 1.5 MG, UNK
     Dates: start: 20070227, end: 20070625
  5. ANAGRELIDE HCL [Suspect]
     Dosage: 1.5 MG, UNK
     Dates: start: 20060411, end: 20060728
  6. ATENOLOL [Suspect]
     Indication: HYPERTENSION
     Dosage: 100 MG, UNK
     Dates: start: 20080101
  7. ANAGRELIDE HCL [Suspect]
     Dosage: 1.5 MG, UNK
     Dates: start: 20051213, end: 20060207
  8. ANAGRELIDE HCL [Suspect]
     Dosage: 1 MG, UNK
     Dates: start: 20091028
  9. ANAGRELIDE HCL [Suspect]
     Dosage: 1 MG, UNK
     Dates: start: 20060729, end: 20070226
  10. HYDROXYUREA [Suspect]
     Dosage: 500 MG, UNK
     Dates: start: 19971205, end: 20051009
  11. ANAGRELIDE HCL [Suspect]
     Dosage: 1.5 MG, UNK
     Dates: start: 20080715, end: 20081027
  12. ACENOCOUMAROL [Suspect]
     Dosage: 3 MG, QD
     Dates: start: 19960523
  13. ASPIRIN [Suspect]
     Dosage: 100 MG, UNK
     Dates: start: 20060505
  14. ANAGRELIDE HCL [Suspect]
     Dosage: 1 MG, UNK
     Dates: start: 20070626, end: 20080714
  15. TAMSULOSIN HYDROCHLORIDE [Suspect]
     Indication: PROSTATIC DISORDER
     Dosage: 4 MG, UNK
     Dates: start: 20080101
  16. GLICLAZIDE [Suspect]
     Indication: DIABETES MELLITUS
     Dosage: 30 MG, UNK
     Dates: start: 20080101

REACTIONS (33)
  - LOSS OF CONSCIOUSNESS [None]
  - ARRHYTHMIA [None]
  - ARTERITIS [None]
  - NEUROPATHY PERIPHERAL [None]
  - VENTRICULAR TACHYARRHYTHMIA [None]
  - MYDRIASIS [None]
  - MYOCARDIAL INFARCTION [None]
  - ENCEPHALITIS [None]
  - MYOCARDIAL ISCHAEMIA [None]
  - VENTRICULAR FIBRILLATION [None]
  - RESPIRATORY DEPRESSION [None]
  - EMBOLISM ARTERIAL [None]
  - GUILLAIN-BARRE SYNDROME [None]
  - HYPERGLYCAEMIA [None]
  - NEUROGENIC SHOCK [None]
  - HYPOVOLAEMIC SHOCK [None]
  - TACHYARRHYTHMIA [None]
  - BRAIN OEDEMA [None]
  - MENINGITIS NONINFECTIVE [None]
  - TORSADE DE POINTES [None]
  - SEPTIC SHOCK [None]
  - AREFLEXIA [None]
  - HYPOTENSION [None]
  - OXYGEN SATURATION DECREASED [None]
  - SHOCK [None]
  - ANAPHYLACTIC REACTION [None]
  - HAEMODYNAMIC INSTABILITY [None]
  - VESTIBULAR DISORDER [None]
  - HYPONATRAEMIA [None]
  - DIZZINESS [None]
  - ANAPHYLACTOID SHOCK [None]
  - CARDIO-RESPIRATORY ARREST [None]
  - DELIRIUM [None]
